FAERS Safety Report 8790419 (Version 1)
Quarter: 2012Q4

REPORT INFORMATION
  Report Type: Spontaneous
  Country: US (occurrence: None)
  Receive Date: 20120911
  Receipt Date: 20120911
  Transmission Date: 20130627
  Serious: Yes (Disabling, Other)
  Sender: FDA-Public Use
  Company Number: None

PATIENT
  Age: 36 Year
  Sex: Female
  Weight: 55.79 kg

DRUGS (2)
  1. XIFAXAN [Suspect]
     Indication: SMALL INTESTINAL BACTERIAL OVERGROWTH
     Route: 048
     Dates: start: 20120824, end: 20120901
  2. FLORASTOR [Concomitant]

REACTIONS (5)
  - Neuropathy peripheral [None]
  - Arthralgia [None]
  - Muscular weakness [None]
  - Muscle spasms [None]
  - Pain [None]
